FAERS Safety Report 8779732 (Version 1)
Quarter: 2012Q4

REPORT INFORMATION
  Report Type: 
  Country: US (occurrence: US)
  Receive Date: 20120912
  Receipt Date: 20120912
  Transmission Date: 20130627
  Serious: No
  Sender: FDA-Public Use
  Company Number: US-VERTEX PHARMACEUTICAL INC.-AE-2012-005863

PATIENT

DRUGS (10)
  1. INCIVEK [Suspect]
     Indication: HEPATITIS C
     Route: 048
     Dates: start: 20120405
  2. PEGASYS [Concomitant]
     Indication: HEPATITIS C
     Route: 058
     Dates: start: 20120405
  3. RIBASPHERE [Concomitant]
     Indication: HEPATITIS C
     Route: 048
     Dates: start: 20120405
  4. CLONAZEPAM [Concomitant]
     Route: 048
  5. EXFORGE [Concomitant]
     Route: 048
  6. LEXAPRO [Concomitant]
     Route: 048
  7. LITHIUM [Concomitant]
     Route: 048
  8. RISPERDAL [Concomitant]
     Route: 048
  9. ANTIHISTAMINES [Concomitant]
  10. KLONOPIN [Concomitant]

REACTIONS (9)
  - Dyspnoea [Not Recovered/Not Resolved]
  - Heart rate increased [Not Recovered/Not Resolved]
  - Oedema peripheral [Recovered/Resolved]
  - Abdominal discomfort [Unknown]
  - Rash [Recovered/Resolved]
  - Nausea [Unknown]
  - Diarrhoea [Unknown]
  - Anal pruritus [Unknown]
  - Anorectal discomfort [Unknown]
